FAERS Safety Report 25102284 (Version 2)
Quarter: 2025Q1

REPORT INFORMATION
  Report Type: Report from Study
  Country: US (occurrence: US)
  Receive Date: 20250320
  Receipt Date: 20250324
  Transmission Date: 20250408
  Serious: Yes (Other)
  Sender: ABBVIE
  Company Number: US-ABBVIE-6179709

PATIENT
  Age: 19 Year
  Sex: Male

DRUGS (1)
  1. SKYRIZI [Suspect]
     Active Substance: RISANKIZUMAB-RZAA
     Indication: Colitis ulcerative
     Dosage: FORM STRENGTH: 360MG/2.4ML
     Route: 058
     Dates: start: 20250127, end: 20250127

REACTIONS (7)
  - Pulmonary embolism [Unknown]
  - Peripheral swelling [Unknown]
  - Pain in extremity [Unknown]
  - Dyspnoea [Unknown]
  - Acquired factor XI deficiency [Unknown]
  - Inflammation [Unknown]
  - Haemoglobin decreased [Unknown]
